FAERS Safety Report 6251390-9 (Version None)
Quarter: 2009Q2

REPORT INFORMATION
  Report Type: 
  Country: None (occurrence: None)
  Receive Date: 20090630
  Receipt Date: 20090619
  Transmission Date: 20091009
  Serious: Yes (Other)
  Sender: FDA-Public Use
  Company Number: B0581277A

PATIENT
  Sex: Female

DRUGS (3)
  1. TAGAMET [Suspect]
     Indication: DRUG USE FOR UNKNOWN INDICATION
     Route: 065
  2. DOMPERIDONE [Suspect]
     Indication: DRUG USE FOR UNKNOWN INDICATION
     Route: 065
  3. ALPRAZOLAM [Suspect]
     Indication: DRUG USE FOR UNKNOWN INDICATION
     Route: 065

REACTIONS (5)
  - BLOOD PROLACTIN [None]
  - BRAIN NEOPLASM [None]
  - DIZZINESS [None]
  - HEADACHE [None]
  - METRORRHAGIA [None]
